FAERS Safety Report 9928051 (Version 1)
Quarter: 2014Q1

REPORT INFORMATION
  Report Type: Spontaneous
  Country: US (occurrence: US)
  Receive Date: 20140227
  Receipt Date: 20140227
  Transmission Date: 20141002
  Serious: No
  Sender: FDA-Public Use
  Company Number: US-DRREDDYS-USA/USA/14/0036991

PATIENT
  Sex: Female

DRUGS (1)
  1. MONTELUKAST [Suspect]
     Indication: ASTHMA
     Route: 065

REACTIONS (3)
  - Nightmare [Unknown]
  - Drug ineffective [Unknown]
  - Product quality issue [Unknown]
